FAERS Safety Report 20379535 (Version 1)
Quarter: 2022Q1

REPORT INFORMATION
  Report Type: Report from Study
  Country: TH (occurrence: TH)
  Receive Date: 20220126
  Receipt Date: 20220126
  Transmission Date: 20220423
  Serious: Yes (Other)
  Sender: FDA-Public Use
  Company Number: TH-ViiV Healthcare Limited-TH2022GSK009654

PATIENT
  Age: 28 Year
  Sex: Male
  Weight: 65.4 kg

DRUGS (3)
  1. DOLUTEGRAVIR [Suspect]
     Active Substance: DOLUTEGRAVIR
     Indication: Acute HIV infection
     Dosage: 50 MG, QD
     Route: 048
     Dates: start: 20180806, end: 20220118
  2. TENOFOVIR DISOPROXIL FUMARATE [Suspect]
     Active Substance: TENOFOVIR DISOPROXIL FUMARATE
     Indication: Acute HIV infection
     Dosage: UNK
     Route: 048
     Dates: start: 20180806
  3. LAMIVUDINE [Suspect]
     Active Substance: LAMIVUDINE
     Indication: Acute HIV infection
     Dosage: 300 MG, QD
     Route: 048
     Dates: start: 20180806

REACTIONS (1)
  - Hepatitis C [Unknown]

NARRATIVE: CASE EVENT DATE: 20220118
